FAERS Safety Report 4605791-2 (Version None)
Quarter: 2005Q1

REPORT INFORMATION
  Report Type: 
  Country: None (occurrence: None)
  Receive Date: 20050115
  Receipt Date: 20040211
  Transmission Date: 20050727
  Serious: Yes (Hospitalization)
  Sender: FDA-Public Use
  Company Number: A03200400428

PATIENT
  Age: 86 Year
  Sex: Female

DRUGS (5)
  1. AMBIEN [Suspect]
     Indication: SOMNOLENCE
     Dosage: 10 MG HS - ORAL
     Route: 048
     Dates: start: 20040116, end: 20040101
  2. POTASSIUM CHLORIDE [Concomitant]
  3. WARFARIN SODIUM [Concomitant]
  4. DIGOXIN [Concomitant]
  5. METOLAZONE [Concomitant]

REACTIONS (1)
  - ANXIETY [None]
